FAERS Safety Report 8275479-8 (Version None)
Quarter: 2012Q2

REPORT INFORMATION
  Report Type: 
  Country: None (occurrence: None)
  Receive Date: 20120411
  Receipt Date: 20120321
  Transmission Date: 20120825
  Serious: No
  Sender: FDA-Public Use
  Company Number: US-BAXTER-2012BAX000694

PATIENT
  Sex: Female
  Weight: 89.438 kg

DRUGS (2)
  1. PENICILLIN G POTASSIUM [Suspect]
     Route: 042
     Dates: start: 20120212, end: 20120212
  2. 0.9% SODIUM CHLORIDE INJECTION [Suspect]
     Route: 042
     Dates: start: 20120212, end: 20120212

REACTIONS (2)
  - MATERNAL EXPOSURE DURING PREGNANCY [None]
  - INFUSION SITE PAIN [None]
